FAERS Safety Report 21761821 (Version 1)
Quarter: 2022Q4

REPORT INFORMATION
  Report Type: Spontaneous
  Country: US (occurrence: US)
  Receive Date: 20221221
  Receipt Date: 20221221
  Transmission Date: 20230113
  Serious: No
  Sender: FDA-Public Use
  Company Number: US-SA-SAC20221215001270

PATIENT
  Sex: Male

DRUGS (1)
  1. DUPIXENT [Suspect]
     Active Substance: DUPILUMAB
     Dosage: 200 MG, FREQUECY - OTHER
     Route: 058

REACTIONS (5)
  - Eyelid skin dryness [Unknown]
  - Swelling of eyelid [Recovered/Resolved]
  - Erythema [Unknown]
  - Rash macular [Unknown]
  - Rash [Unknown]
